FAERS Safety Report 4757097-9 (Version None)
Quarter: 2005Q3

REPORT INFORMATION
  Report Type: 
  Country: None (occurrence: None)
  Receive Date: 20050829
  Receipt Date: 20050829
  Transmission Date: 20060218
  Serious: Yes (Death)
  Sender: FDA-Public Use
  Company Number: None

PATIENT
  Age: 62 Year
  Sex: Male

DRUGS (8)
  1. AVASTIN [Suspect]
     Indication: RECTAL CANCER STAGE III
     Dosage: 5MG/KG = 340MG  Q 14 DAYS  IV
     Route: 042
     Dates: start: 20050124, end: 20050822
  2. ALOXI [Concomitant]
  3. DECADRON [Concomitant]
  4. MAGNESIUM SULFATE [Concomitant]
  5. OXALIPLATIN [Concomitant]
  6. CALCIUM GLUCONATE [Concomitant]
  7. LEUCOVORIN [Concomitant]
  8. FLUOROURACIL [Concomitant]

REACTIONS (5)
  - CARDIAC ARREST [None]
  - FALL [None]
  - PULSE ABSENT [None]
  - SUDDEN CARDIAC DEATH [None]
  - VENTRICULAR FIBRILLATION [None]
